FAERS Safety Report 8377716-8 (Version None)
Quarter: 2012Q2

REPORT INFORMATION
  Report Type: 
  Country: None (occurrence: None)
  Receive Date: 20120522
  Receipt Date: 20120514
  Transmission Date: 20120825
  Serious: Yes (Other)
  Sender: FDA-Public Use
  Company Number: JP-GLAXOSMITHKLINE-B0719821A

PATIENT
  Age: 4 Year
  Sex: Female
  Weight: 19.5 kg

DRUGS (2)
  1. LAMICTAL [Suspect]
     Dosage: 2MG PER DAY
     Route: 048
  2. VALPROATE SODIUM [Concomitant]
     Dosage: 600MG PER DAY
     Route: 048

REACTIONS (4)
  - DRUG ERUPTION [None]
  - PLATELET COUNT DECREASED [None]
  - COAGULOPATHY [None]
  - PYREXIA [None]
